FAERS Safety Report 6802556-8 (Version None)
Quarter: 2010Q2

REPORT INFORMATION
  Report Type: 
  Country: None (occurrence: None)
  Receive Date: 20100629
  Receipt Date: 20090803
  Transmission Date: 20101027
  Serious: No
  Sender: FDA-Public Use
  Company Number: US-PFIZER INC-2005091594

PATIENT
  Sex: Male

DRUGS (4)
  1. VIAGRA [Suspect]
     Indication: ERECTILE DYSFUNCTION
     Dosage: 100 MG, AS NEEDED
     Route: 048
  2. TESTOSTERONE [Concomitant]
     Route: 065
     Dates: start: 19840101
  3. ADVAIR DISKUS 100/50 [Concomitant]
     Route: 055
  4. ALLEGRA [Concomitant]
     Route: 048

REACTIONS (8)
  - ANXIETY [None]
  - CYANOPSIA [None]
  - DRUG INEFFECTIVE [None]
  - FEELING HOT [None]
  - GROIN INFECTION [None]
  - LOCAL SWELLING [None]
  - PHOTOPHOBIA [None]
  - SPONTANEOUS PENILE ERECTION [None]
